FAERS Safety Report 4442681-2 (Version None)
Quarter: 2004Q3

REPORT INFORMATION
  Report Type: 
  Country: None (occurrence: None)
  Receive Date: 20040903
  Receipt Date: 20040617
  Transmission Date: 20050211
  Serious: Yes (Other)
  Sender: FDA-Public Use
  Company Number: 2004UW10121

PATIENT
  Age: 58 Year
  Sex: Female
  Weight: 102.5129 kg

DRUGS (1)
  1. CRESTOR [Suspect]
     Dosage: 10 MG QD PO
     Route: 048
     Dates: start: 20040201, end: 20040401

REACTIONS (4)
  - NIGHTMARE [None]
  - PRURITUS [None]
  - RASH [None]
  - WHEEZING [None]
